FAERS Safety Report 9725601 (Version 1)
Quarter: 2013Q4

REPORT INFORMATION
  Report Type: Spontaneous
  Country: US (occurrence: None)
  Receive Date: 20131127
  Receipt Date: 20131127
  Transmission Date: 20140711
  Serious: Yes (Other)
  Sender: FDA-Public Use
  Company Number: 2034719

PATIENT
  Age: 70 Year
  Sex: Male

DRUGS (2)
  1. GLYCERYL TRINITRATE [Suspect]
     Indication: ARTERIAL SPASM
     Route: 013
  2. GLYCERYL TRINITRATE [Suspect]
     Indication: PROPHYLAXIS
     Route: 013

REACTIONS (4)
  - Hypotension [None]
  - Bradycardia [None]
  - Hyperhidrosis [None]
  - Reflexes abnormal [None]
